FAERS Safety Report 5233081-6 (Version None)
Quarter: 2007Q1

REPORT INFORMATION
  Report Type: 
  Country: None (occurrence: None)
  Receive Date: 20061204
  Receipt Date: 20061017
  Transmission Date: 20070707
  Serious: No
  Sender: FDA-Public Use
  Company Number: 2006-BP-12212BP

PATIENT
  Age: 75 Year
  Sex: Female

DRUGS (3)
  1. SPIRIVA [Suspect]
     Indication: BRONCHIECTASIS
     Dosage: 18 MG (18 MG,1 IN 1 D),IH
     Dates: start: 20060201
  2. SPIRIVA [Suspect]
     Indication: CHRONIC OBSTRUCTIVE PULMONARY DISEASE
     Dosage: 18 MG (18 MG,1 IN 1 D),IH
     Dates: start: 20060201
  3. RUTUXIN(ALL OTHER THERAPEUTIC PRODUCTS) [Suspect]
     Indication: EXTRANODAL MARGINAL ZONE B-CELL LYMPHOMA (MALT TYPE)
     Dates: start: 20060101, end: 20060401

REACTIONS (3)
  - CELLULITIS [None]
  - ORAL CANDIDIASIS [None]
  - TONGUE GEOGRAPHIC [None]
